FAERS Safety Report 9874299 (Version 2)
Quarter: 2014Q1

REPORT INFORMATION
  Report Type: Other
  Country: US (occurrence: US)
  Receive Date: 20140206
  Receipt Date: 20140206
  Transmission Date: 20141002
  Serious: No
  Sender: FDA-Public Use
  Company Number: US-ACORDA-ACO_34581_2013

PATIENT
  Age: 52 Year
  Sex: Female
  Weight: 83.45 kg

DRUGS (2)
  1. AMPYRA [Suspect]
     Indication: ATAXIA
     Dosage: 10 MG, BID
     Route: 048
  2. COPAXONE [Concomitant]
     Indication: PRODUCT USED FOR UNKNOWN INDICATION
     Dosage: 20 MG, QD
     Route: 058

REACTIONS (6)
  - Rheumatoid arthritis [Recovered/Resolved]
  - Depression [Recovered/Resolved]
  - Stress [Recovered/Resolved]
  - Pain [Recovered/Resolved]
  - Anxiety [Recovered/Resolved]
  - Osteoarthritis [Recovered/Resolved]
